FAERS Safety Report 16496338 (Version 1)
Quarter: 2019Q2

REPORT INFORMATION
  Report Type: Report from Study
  Country: US (occurrence: US)
  Receive Date: 20190628
  Receipt Date: 20190628
  Transmission Date: 20190711
  Serious: Yes (Hospitalization, Other)
  Sender: FDA-Public Use
  Company Number: US-BRISTOL-MYERS SQUIBB COMPANY-BMS-2019-062297

PATIENT
  Age: 75 Year
  Sex: Male
  Weight: 58.4 kg

DRUGS (1)
  1. NIVOLUMAB [Suspect]
     Active Substance: NIVOLUMAB
     Indication: SMALL CELL LUNG CANCER
     Dosage: 240 MILLIGRAM, Q2WK
     Route: 042
     Dates: start: 20190517

REACTIONS (4)
  - Fall [Recovering/Resolving]
  - Femoral neck fracture [Unknown]
  - Pneumothorax [Unknown]
  - Hip deformity [Recovering/Resolving]

NARRATIVE: CASE EVENT DATE: 20190619
